FAERS Safety Report 5070458-6 (Version None)
Quarter: 2006Q3

REPORT INFORMATION
  Report Type: 
  Country: None (occurrence: None)
  Receive Date: 20060804
  Receipt Date: 20060523
  Transmission Date: 20061208
  Serious: Yes (Hospitalization)
  Sender: FDA-Public Use
  Company Number: FR-ABBOTT-06P-056-0334140-00

PATIENT
  Sex: Female

DRUGS (5)
  1. VALPROATE SODIUM [Suspect]
     Indication: BIPOLAR I DISORDER
     Route: 048
     Dates: start: 20051213, end: 20060426
  2. ARIPIPRAZOLE [Suspect]
     Indication: BIPOLAR I DISORDER
     Route: 048
     Dates: start: 20050216, end: 20060426
  3. ARIPIPRAZOLE [Suspect]
     Route: 048
     Dates: start: 20060105, end: 20060118
  4. ARIPIPRAZOLE [Suspect]
     Route: 048
     Dates: start: 20060119, end: 20060215
  5. LEVOTHYROXINE SODIUM [Concomitant]
     Indication: DRUG USE FOR UNKNOWN INDICATION

REACTIONS (4)
  - ANXIETY [None]
  - DELUSION [None]
  - MAJOR DEPRESSION [None]
  - SUICIDAL IDEATION [None]
